FAERS Safety Report 8454100-X (Version None)
Quarter: 2012Q2

REPORT INFORMATION
  Report Type: 
  Country: None (occurrence: None)
  Receive Date: 20120620
  Receipt Date: 20120614
  Transmission Date: 20120825
  Serious: Yes (Hospitalization, Other)
  Sender: FDA-Public Use
  Company Number: US-TEVA-343212USA

PATIENT
  Sex: Female

DRUGS (1)
  1. COPAXONE [Suspect]
     Indication: MULTIPLE SCLEROSIS
     Route: 058
     Dates: start: 20070428

REACTIONS (6)
  - DYSPNOEA [None]
  - PULMONARY THROMBOSIS [None]
  - PNEUMONIA [None]
  - INFECTION [None]
  - AMNESIA [None]
  - SEPTIC SHOCK [None]
